FAERS Safety Report 7821955-9 (Version None)
Quarter: 2011Q4

REPORT INFORMATION
  Report Type: 
  Country: None (occurrence: None)
  Receive Date: 20111018
  Receipt Date: 20110706
  Transmission Date: 20120403
  Serious: No
  Sender: FDA-Public Use
  Company Number: US-ASTRAZENECA-2011SE40358

PATIENT
  Age: 43 Year
  Sex: Female

DRUGS (1)
  1. SYMBICORT [Suspect]
     Indication: ASTHMA
     Dosage: 160/4.5 MCG 2 PUFFS, TWO TIMES A DAY
     Route: 055
     Dates: start: 20101001

REACTIONS (7)
  - HEART RATE INCREASED [None]
  - CHEST PAIN [None]
  - NERVOUSNESS [None]
  - HEADACHE [None]
  - TREMOR [None]
  - HEART RATE IRREGULAR [None]
  - BLOOD PRESSURE INCREASED [None]
